FAERS Safety Report 5087270-4 (Version None)
Quarter: 2006Q3

REPORT INFORMATION
  Report Type: 
  Country: None (occurrence: None)
  Receive Date: 20060824
  Receipt Date: 20060811
  Transmission Date: 20061208
  Serious: Yes (Disabling)
  Sender: FDA-Public Use
  Company Number: US-KINGPHARMUSA00001-K200601042

PATIENT
  Age: 60 Year
  Sex: Female

DRUGS (4)
  1. ALTACE [Suspect]
     Indication: HYPERTENSION
     Route: 048
     Dates: start: 20030101, end: 20050114
  2. ASPIRIN [Concomitant]
     Indication: HYPERTENSION
     Dosage: 75 DF, UNK
     Route: 047
  3. BENDROFLUAZIDE [Concomitant]
     Indication: HYPERTENSION
     Dosage: 2.5 DF, UNK
  4. SECURON [Concomitant]
     Indication: PALPITATIONS
     Dosage: 120 DF, QOD
     Route: 048

REACTIONS (4)
  - CLUMSINESS [None]
  - MUSCLE SPASMS [None]
  - MUSCULOSKELETAL STIFFNESS [None]
  - PAIN [None]
